FAERS Safety Report 11173699 (Version 1)
Quarter: 2015Q2

REPORT INFORMATION
  Report Type: Spontaneous
  Country: US (occurrence: US)
  Receive Date: 20150609
  Receipt Date: 20150609
  Transmission Date: 20150821
  Serious: Yes (Hospitalization)
  Sender: FDA-Public Use
  Company Number: US-AUROBINDO-AUR-APL-2015-04888

PATIENT
  Age: 10 Month
  Sex: Female

DRUGS (1)
  1. OXYCODONE [Suspect]
     Active Substance: OXYCODONE
     Indication: PRODUCT USED FOR UNKNOWN INDICATION
     Route: 065

REACTIONS (12)
  - Encephalitis [Unknown]
  - Respiratory acidosis [Unknown]
  - Hypertonia [Unknown]
  - Brain oedema [Unknown]
  - Hypoxia [Unknown]
  - Metabolic acidosis [Unknown]
  - Brain injury [Unknown]
  - Eye movement disorder [Unknown]
  - Transaminases increased [Unknown]
  - Leukocytosis [Unknown]
  - Hydrocephalus [Unknown]
  - Accidental overdose [Unknown]
